FAERS Safety Report 7396505-4 (Version None)
Quarter: 2011Q2

REPORT INFORMATION
  Report Type: 
  Country: None (occurrence: None)
  Receive Date: 20110406
  Receipt Date: 20110331
  Transmission Date: 20111010
  Serious: Yes (Hospitalization)
  Sender: FDA-Public Use
  Company Number: US-ALEXION-A201100458

PATIENT
  Sex: Female

DRUGS (5)
  1. SOLIRIS [Suspect]
     Indication: PAROXYSMAL NOCTURNAL HAEMOGLOBINURIA
     Dosage: 900 MG, Q2W
     Route: 042
     Dates: start: 20090901
  2. SOTALOL [Concomitant]
     Indication: ATRIAL FIBRILLATION
     Dosage: UNK
  3. ZANTAC [Concomitant]
     Indication: PROPHYLAXIS
     Dosage: UNK
  4. CLARITIN [Concomitant]
     Indication: PROPHYLAXIS
     Dosage: UNK
  5. NEURONTIN [Concomitant]
     Dosage: UNK

REACTIONS (2)
  - DEVICE RELATED INFECTION [None]
  - TRANSFUSION [None]
